FAERS Safety Report 8202956-8 (Version None)
Quarter: 2012Q1

REPORT INFORMATION
  Report Type: 
  Country: None (occurrence: None)
  Receive Date: 20120312
  Receipt Date: 20120306
  Transmission Date: 20120608
  Serious: Yes (Hospitalization, Other)
  Sender: FDA-Public Use
  Company Number: US-PFIZER INC-2011224225

PATIENT
  Sex: Male

DRUGS (10)
  1. LEXAPRO [Concomitant]
     Indication: BIPOLAR DISORDER
  2. CLONAZEPAM [Concomitant]
     Indication: SLEEP DISORDER
  3. CHANTIX [Suspect]
     Dosage: UNK
     Dates: start: 20110801
  4. LEXAPRO [Concomitant]
     Indication: DEPRESSION
     Dosage: UNK
     Dates: start: 20070101
  5. ACETAMINOPHEN AND HYDROCODONE BITARTRATE [Concomitant]
     Indication: BACK PAIN
     Dosage: UNK
     Dates: start: 20020101
  6. CLONAZEPAM [Concomitant]
     Indication: ANXIETY
     Dosage: UNK
     Dates: start: 20050101, end: 20100601
  7. CHANTIX [Suspect]
     Dosage: UNK
     Dates: start: 20080401
  8. NORCO [Concomitant]
     Indication: ANALGESIC THERAPY
     Dosage: UNK
     Dates: start: 20080901, end: 20091001
  9. CHANTIX [Suspect]
     Indication: SMOKING CESSATION THERAPY
     Dosage: UNK
     Dates: start: 20070601, end: 20070701
  10. ACETAMINOPHEN AND HYDROCODONE BITARTRATE [Concomitant]
     Indication: NECK PAIN

REACTIONS (8)
  - INTENTIONAL OVERDOSE [None]
  - NECK PAIN [None]
  - BIPOLAR DISORDER [None]
  - ATTENTION DEFICIT/HYPERACTIVITY DISORDER [None]
  - ANXIETY [None]
  - BACK PAIN [None]
  - DEPRESSION [None]
  - SUICIDE ATTEMPT [None]
